FAERS Safety Report 7108493-6 (Version None)
Quarter: 2010Q4

REPORT INFORMATION
  Report Type: 
  Country: None (occurrence: None)
  Receive Date: 20101117
  Receipt Date: 20101111
  Transmission Date: 20110411
  Serious: Yes (Other)
  Sender: FDA-Public Use
  Company Number: US-PFIZER INC-2010102155

PATIENT
  Sex: Female
  Weight: 52.154 kg

DRUGS (4)
  1. CHANTIX [Suspect]
     Indication: SMOKING CESSATION THERAPY
     Dosage: 0.5 MG, 1X/DAY
     Route: 048
     Dates: start: 20100801, end: 20101006
  2. CHANTIX [Suspect]
     Indication: TOBACCO ABUSE
  3. ADVAIR DISKUS 100/50 [Concomitant]
     Dosage: 250/50
  4. SPIRIVA [Concomitant]
     Dosage: UNK
     Route: 055

REACTIONS (12)
  - DRUG INEFFECTIVE [None]
  - INSOMNIA [None]
  - LACRIMATION INCREASED [None]
  - MUSCLE SPASMS [None]
  - MUSCLE STRAIN [None]
  - NAUSEA [None]
  - NIGHT BLINDNESS [None]
  - NIGHTMARE [None]
  - SLEEP DISORDER [None]
  - VISION BLURRED [None]
  - VISUAL ACUITY REDUCED [None]
  - VISUAL IMPAIRMENT [None]
